FAERS Safety Report 20791988 (Version 2)
Quarter: 2022Q2

REPORT INFORMATION
  Report Type: Spontaneous
  Country: US (occurrence: US)
  Receive Date: 20220505
  Receipt Date: 20220530
  Transmission Date: 20220720
  Serious: No
  Sender: FDA-Public Use
  Company Number: US-BRISTOL-MYERS SQUIBB COMPANY-2022-032426

PATIENT
  Age: 81 Year
  Sex: Female

DRUGS (3)
  1. REVLIMID [Suspect]
     Active Substance: LENALIDOMIDE
     Indication: Plasma cell myeloma
     Dosage: FREQUENCY-TAKE 1 CAPSULE BY MOUTH AT BEDTIME FOR 21 DAYS THEN OFF FOR 7 DAYS
     Route: 048
     Dates: start: 20220121
  2. REVLIMID [Suspect]
     Active Substance: LENALIDOMIDE
     Dosage: FOR 3 WEEKS AND 1 WEEK OFF
     Route: 048
  3. REVLIMID [Suspect]
     Active Substance: LENALIDOMIDE
     Route: 048

REACTIONS (3)
  - Lip swelling [Recovered/Resolved]
  - Lip pruritus [Recovered/Resolved]
  - Rash pruritic [Unknown]
